FAERS Safety Report 5536876-4 (Version None)
Quarter: 2007Q4

REPORT INFORMATION
  Report Type: 
  Country: None (occurrence: None)
  Receive Date: 20071206
  Receipt Date: 20070220
  Transmission Date: 20080405
  Serious: Yes (Hospitalization)
  Sender: FDA-Public Use
  Company Number: US-AMGEN-US208157

PATIENT
  Sex: Male
  Weight: 74.9 kg

DRUGS (3)
  1. ENBREL [Suspect]
     Indication: PSORIASIS
     Route: 058
     Dates: start: 20050201, end: 20061001
  2. METHOTREXATE [Concomitant]
     Route: 065
     Dates: start: 19910101
  3. RETINOIDS [Concomitant]
     Route: 048
     Dates: start: 19990101

REACTIONS (2)
  - CLEAR CELL CARCINOMA OF THE KIDNEY [None]
  - PSORIASIS [None]
